FAERS Safety Report 26172229 (Version 1)
Quarter: 2025Q4

REPORT INFORMATION
  Report Type: Spontaneous
  Country: KR (occurrence: KR)
  Receive Date: 20251218
  Receipt Date: 20251218
  Transmission Date: 20260118
  Serious: Yes (Hospitalization, Other)
  Sender: CELLTRION
  Company Number: KR-CELLTRION INC.-2025KR044917

PATIENT

DRUGS (13)
  1. EYDENZELT [Suspect]
     Active Substance: AFLIBERCEPT-BOAV
     Indication: Neovascular age-related macular degeneration
     Dosage: FREQUENCY: ONCE
     Dates: start: 20250724
  2. EYDENZELT [Suspect]
     Active Substance: AFLIBERCEPT-BOAV
     Dosage: UNK
     Dates: start: 20250904
  3. EYDENZELT [Suspect]
     Active Substance: AFLIBERCEPT-BOAV
     Dosage: UNK
     Dates: start: 20250925
  4. EYDENZELT [Suspect]
     Active Substance: AFLIBERCEPT-BOAV
     Dosage: UNK
     Dates: start: 20251014
  5. EYDENZELT [Suspect]
     Active Substance: AFLIBERCEPT-BOAV
     Dosage: UNK
     Dates: start: 20251121
  6. ACLOFEN [Concomitant]
  7. DORZOLAMIDE HYDROCHLORIDE\TIMOLOL MALEATE [Concomitant]
     Active Substance: DORZOLAMIDE HYDROCHLORIDE\TIMOLOL MALEATE
  8. ALCON ATROPINE [Concomitant]
  9. ALCAINE [Concomitant]
     Active Substance: PROPARACAINE HYDROCHLORIDE
  10. ACETYLCYSTEINE [Concomitant]
     Active Substance: ACETYLCYSTEINE
  11. PREDBELL [Concomitant]
  12. CYCIN [CIPROFLOXACIN HYDROCHLORIDE] [Concomitant]
  13. HERBALS [Concomitant]
     Active Substance: HERBALS

REACTIONS (3)
  - Retinal oedema [Recovered/Resolved]
  - Retinal haemorrhage [Recovered/Resolved]
  - Retinal detachment [Recovered/Resolved]

NARRATIVE: CASE EVENT DATE: 20251001
